FAERS Safety Report 6283582-7 (Version None)
Quarter: 2009Q3

REPORT INFORMATION
  Report Type: 
  Country: None (occurrence: None)
  Receive Date: 20090722
  Receipt Date: 20090722
  Transmission Date: 20100115
  Serious: Yes (Hospitalization)
  Sender: FDA-Public Use
  Company Number: None

PATIENT
  Sex: Male
  Weight: 73.0291 kg

DRUGS (3)
  1. CETUXIMAB 250 MG/M2 BMS [Suspect]
     Indication: NON-SMALL CELL LUNG CANCER
     Dosage: 513 MG EVERY WEEK IV DRIP
     Route: 041
  2. BRONCHOSCOPY [Concomitant]
  3. INSERTION OF PIGTAIL CATHETER TO SUCTION [Concomitant]

REACTIONS (1)
  - PNEUMOTHORAX [None]
